FAERS Safety Report 7718402-4 (Version None)
Quarter: 2011Q3

REPORT INFORMATION
  Report Type: 
  Country: None (occurrence: None)
  Receive Date: 20110830
  Receipt Date: 20110822
  Transmission Date: 20111222
  Serious: Yes (Hospitalization, Other)
  Sender: FDA-Public Use
  Company Number: PHHY2011BR75598

PATIENT
  Sex: Female

DRUGS (2)
  1. FORMOTEROL FUMARATE [Suspect]
     Indication: ASTHMA
     Dosage: 400 UG, UNK
  2. ALBUTEROL [Concomitant]
     Indication: ASTHMA

REACTIONS (4)
  - PNEUMONIA [None]
  - BRONCHITIS [None]
  - LUNG DISORDER [None]
  - DERMATITIS ALLERGIC [None]
